FAERS Safety Report 4285861-1 (Version None)
Quarter: 2004Q1

REPORT INFORMATION
  Report Type: 
  Country: None (occurrence: None)
  Receive Date: 20040203
  Receipt Date: 20040121
  Transmission Date: 20041129
  Serious: Yes (Other)
  Sender: FDA-Public Use
  Company Number: DE-JNJFOC-20031104108

PATIENT
  Age: 31 Year
  Sex: Male
  Weight: 57 kg

DRUGS (3)
  1. RISPERDAL [Suspect]
     Indication: SCHIZOPHRENIA
     Dosage: 4 MG, 1 IN 1 DAY, ORAL
     Route: 048
     Dates: start: 20030825, end: 20031023
  2. AKINETON RETARD (BIPERIDEN HYDROCHLORIDE) TABLETS [Concomitant]
  3. STILNOX (ZOLPIDEM) [Concomitant]

REACTIONS (2)
  - LEUKOPENIA [None]
  - MALNUTRITION [None]
